FAERS Safety Report 4666759-3 (Version None)
Quarter: 2005Q2

REPORT INFORMATION
  Report Type: 
  Country: None (occurrence: None)
  Receive Date: 20050517
  Receipt Date: 20050425
  Transmission Date: 20051028
  Serious: Yes (Other)
  Sender: FDA-Public Use
  Company Number: 603477

PATIENT
  Age: 60 Year
  Sex: Male
  Weight: 80 kg

DRUGS (10)
  1. ADVATE [Suspect]
     Indication: ARTERIAL BYPASS OPERATION
     Dosage: PRN
     Dates: start: 20050416, end: 20050416
  2. ADVATE [Suspect]
     Indication: HAEMORRHAGE
     Dosage: PRN
     Dates: start: 20050416, end: 20050416
  3. ADVATE [Suspect]
     Indication: PROPHYLAXIS
     Dosage: PRN
     Dates: start: 20050416, end: 20050416
  4. ADVATE [Suspect]
  5. ADVATE [Suspect]
  6. METOPROLOL [Concomitant]
  7. TORSEMIDE [Concomitant]
  8. LIQUEMINE [Concomitant]
  9. CLEXANE [Concomitant]
  10. ALPROSTADIL ALFADEX [Concomitant]

REACTIONS (1)
  - FACTOR VIII INHIBITION [None]
